FAERS Safety Report 13586700 (Version 3)
Quarter: 2017Q2

REPORT INFORMATION
  Report Type: Spontaneous
  Country: ZA (occurrence: ZA)
  Receive Date: 20170526
  Receipt Date: 20170614
  Transmission Date: 20170830
  Serious: Yes (Hospitalization, Other)
  Sender: FDA-Public Use
  Company Number: ZA-AMGEN-ZAFSP2017079789

PATIENT
  Age: 53 Year
  Sex: Female
  Weight: 41 kg

DRUGS (11)
  1. MITOMYCIN. [Concomitant]
     Active Substance: MITOMYCIN
     Indication: MALIGNANT NEOPLASM OF UNKNOWN PRIMARY SITE
     Dosage: UNK
  2. NEULASTIM [Suspect]
     Active Substance: PEGFILGRASTIM
     Indication: PROPHYLAXIS
     Dosage: 6 MG, UNK
     Route: 058
     Dates: start: 20161114, end: 20170405
  3. CISPLATIN. [Concomitant]
     Active Substance: CISPLATIN
     Indication: METASTASES TO NECK
  4. MITOMYCIN. [Concomitant]
     Active Substance: MITOMYCIN
     Indication: METASTASES TO NECK
  5. MITOMYCIN. [Concomitant]
     Active Substance: MITOMYCIN
     Indication: METASTASES TO BONE
  6. RUBEXET [Concomitant]
     Indication: METASTASES TO BONE
  7. CISPLATIN. [Concomitant]
     Active Substance: CISPLATIN
     Indication: MALIGNANT NEOPLASM OF UNKNOWN PRIMARY SITE
     Dosage: UNK
  8. NEUPOGEN [Suspect]
     Active Substance: FILGRASTIM
     Indication: PRODUCT USED FOR UNKNOWN INDICATION
     Dosage: UNK
     Route: 065
     Dates: start: 201702
  9. RUBEXET [Concomitant]
     Indication: MALIGNANT NEOPLASM OF UNKNOWN PRIMARY SITE
     Dosage: UNK
  10. RUBEXET [Concomitant]
     Indication: METASTASES TO NECK
  11. CISPLATIN. [Concomitant]
     Active Substance: CISPLATIN
     Indication: METASTASES TO BONE

REACTIONS (7)
  - Febrile neutropenia [Recovered/Resolved]
  - White blood cell count decreased [Unknown]
  - Neutrophil count abnormal [Unknown]
  - Headache [Unknown]
  - Neutropenia [Unknown]
  - Bronchitis [Unknown]
  - Pain [Unknown]

NARRATIVE: CASE EVENT DATE: 2017
